FAERS Safety Report 6230654-9 (Version None)
Quarter: 2009Q2

REPORT INFORMATION
  Report Type: 
  Country: None (occurrence: None)
  Receive Date: 20090611
  Receipt Date: 20090526
  Transmission Date: 20091009
  Serious: Yes (Other)
  Sender: FDA-Public Use
  Company Number: 000913

PATIENT
  Sex: Female

DRUGS (1)
  1. VIMPAT [Suspect]
     Dosage: (ORAL)
     Route: 048

REACTIONS (1)
  - LEUKOPENIA [None]
